FAERS Safety Report 6321735-X (Version None)
Quarter: 2009Q3

REPORT INFORMATION
  Report Type: 
  Country: None (occurrence: None)
  Receive Date: 20090824
  Receipt Date: 20090813
  Transmission Date: 20100115
  Serious: Yes (Other)
  Sender: FDA-Public Use
  Company Number: US-ROCHE-642135

PATIENT
  Sex: Female

DRUGS (20)
  1. BONIVA [Suspect]
     Indication: OSTEOPENIA
     Route: 048
     Dates: start: 20090201
  2. BONIVA [Suspect]
     Route: 042
     Dates: start: 20090301
  3. FOSAMAX [Suspect]
     Indication: OSTEOPENIA
     Route: 048
     Dates: start: 20090601
  4. ACTONEL [Suspect]
     Indication: OSTEOPENIA
     Route: 048
     Dates: start: 20090401
  5. ACYCLOVIR [Concomitant]
  6. NASACORT AQ [Concomitant]
     Dosage: DRUG: NASACORT AQ 6.5 GR; DOSE: 2 SPRAY, AS NEEDED
  7. XYZAL [Concomitant]
     Dosage: EVERY PM, AS NEEDED
  8. ASPIRIN [Concomitant]
  9. MULTI-VITAMIN [Concomitant]
  10. VITAMIN E [Concomitant]
     Dosage: STRENGTH: 400 INTL UNITS
  11. FISH OIL [Concomitant]
  12. SYNTHROID [Concomitant]
  13. SYNTHROID [Concomitant]
     Dosage: AS DIRECTED
  14. BYSTOLIC [Concomitant]
  15. VYTORIN [Concomitant]
     Dosage: DRUG: VYTORIN 10 MG-20 MG, NOT TAKING 1 TAB ONCE A DAY
  16. CYTOMEL [Concomitant]
  17. SIMVASTATIN [Concomitant]
     Dosage: AT BEDTIME
  18. ZETIA [Concomitant]
  19. VIACTIV [Concomitant]
     Dosage: DRUG: VIACTIV CALCIUM FLAVOR GLIDES
  20. CALCIUM/VITAMIN D/VITAMIN K [Concomitant]

REACTIONS (19)
  - ARTHRALGIA [None]
  - ASPARTATE AMINOTRANSFERASE INCREASED [None]
  - BACK PAIN [None]
  - BONE PAIN [None]
  - CHEST PAIN [None]
  - DRUG INTOLERANCE [None]
  - DYSPHAGIA [None]
  - FATIGUE [None]
  - GASTROOESOPHAGEAL REFLUX DISEASE [None]
  - HEADACHE [None]
  - INSOMNIA [None]
  - MALAISE [None]
  - MUSCULOSKELETAL PAIN [None]
  - MYALGIA [None]
  - NECK PAIN [None]
  - PAIN IN EXTREMITY [None]
  - PAIN IN JAW [None]
  - RENAL IMPAIRMENT [None]
  - THROAT TIGHTNESS [None]
